FAERS Safety Report 5405990-6 (Version None)
Quarter: 2007Q3

REPORT INFORMATION
  Report Type: 
  Country: None (occurrence: None)
  Receive Date: 20070802
  Receipt Date: 20070723
  Transmission Date: 20080115
  Serious: Yes (Other)
  Sender: FDA-Public Use
  Company Number: 07-006A

PATIENT

DRUGS (1)
  1. CORTROSYN [Suspect]
     Indication: ADDISON'S DISEASE
     Dosage: 0.25 MG/IX/IV
     Route: 042

REACTIONS (1)
  - TREATMENT FAILURE [None]
